FAERS Safety Report 15099401 (Version 1)
Quarter: 2018Q3

REPORT INFORMATION
  Report Type: Spontaneous
  Country: FR (occurrence: FR)
  Receive Date: 20180702
  Receipt Date: 20180702
  Transmission Date: 20181010
  Serious: Yes (Other)
  Sender: FDA-Public Use
  Company Number: FR-GILEAD-2018-0322943

PATIENT
  Age: 0 Year
  Sex: Female
  Weight: 2.76 kg

DRUGS (5)
  1. STRIBILD [Suspect]
     Active Substance: COBICISTAT\ELVITEGRAVIR\EMTRICITABINE\TENOFOVIR DISOPROXIL FUMARATE
     Indication: HIV INFECTION
     Dosage: 1 DF, QD
     Route: 064
     Dates: start: 20161226, end: 20170202
  2. VITAMIN B12 [Concomitant]
     Active Substance: CYANOCOBALAMIN
     Indication: VITAMIN B12 DEFICIENCY
     Dosage: UNK
     Dates: start: 20171006, end: 20171011
  3. EVIPLERA [Suspect]
     Active Substance: EMTRICITABINE\RILPIVIRINE\TENOFOVIR DISOPROXIL FUMARATE
     Indication: HIV INFECTION
     Dosage: 1 DF, QD
     Route: 064
     Dates: start: 20170203, end: 20171011
  4. CLAMOXYL                           /00249601/ [Concomitant]
     Active Substance: AMOXICILLIN
     Dosage: UNK
  5. PROSTINE [Concomitant]
     Active Substance: DINOPROSTONE
     Dosage: UNK
     Dates: start: 20171011

REACTIONS (5)
  - Arrhythmia [Unknown]
  - Neonatal respiratory distress [Recovered/Resolved]
  - Foetal heart rate abnormal [Recovered/Resolved]
  - Sickle cell disease [Unknown]
  - Foetal exposure during pregnancy [Recovered/Resolved]

NARRATIVE: CASE EVENT DATE: 20161226
